FAERS Safety Report 8412665-8 (Version None)
Quarter: 2012Q2

REPORT INFORMATION
  Report Type: 
  Country: None (occurrence: None)
  Receive Date: 20120605
  Receipt Date: 20120522
  Transmission Date: 20120825
  Serious: No
  Sender: FDA-Public Use
  Company Number: US-AMGEN-USASP2012032185

PATIENT
  Age: 71 Year
  Sex: Female

DRUGS (1)
  1. ENBREL [Suspect]
     Indication: RHEUMATOID ARTHRITIS
     Dosage: 50 MG, 2 TIMES/WK
     Dates: start: 20111205, end: 20120507

REACTIONS (5)
  - PARANASAL SINUS HYPERSECRETION [None]
  - COUGH [None]
  - DIARRHOEA [None]
  - BRONCHITIS [None]
  - ASTHENIA [None]
